FAERS Safety Report 8410095-6 (Version None)
Quarter: 2012Q2

REPORT INFORMATION
  Report Type: 
  Country: None (occurrence: None)
  Receive Date: 20120323
  Receipt Date: 20111014
  Transmission Date: 20120825
  Serious: Yes (Other)
  Sender: FDA-Public Use
  Company Number: 163-21880-11101768

PATIENT
  Sex: Female

DRUGS (3)
  1. REVLIMID [Suspect]
     Indication: LYMPHOMA
     Dosage: 15 MG, 1 IN 1 D, PO , 10 MG, 2 IN 1 D, PO, 5 MG, 1 IN 1 D, PO
     Route: 048
     Dates: start: 20100601
  2. REVLIMID [Suspect]
     Indication: LYMPHOMA
     Dosage: 15 MG, 1 IN 1 D, PO , 10 MG, 2 IN 1 D, PO, 5 MG, 1 IN 1 D, PO
     Route: 048
     Dates: start: 20101001
  3. REVLIMID [Suspect]
     Indication: LYMPHOMA
     Dosage: 15 MG, 1 IN 1 D, PO , 10 MG, 2 IN 1 D, PO, 5 MG, 1 IN 1 D, PO
     Route: 048
     Dates: start: 20100901

REACTIONS (2)
  - LYMPHOMA [None]
  - DISEASE RECURRENCE [None]
